FAERS Safety Report 9468179 (Version 1)
Quarter: 2013Q3

REPORT INFORMATION
  Report Type: Spontaneous
  Country: US (occurrence: None)
  Receive Date: 20130816
  Receipt Date: 20130816
  Transmission Date: 20140515
  Serious: Yes (Death)
  Sender: FDA-Public Use
  Company Number: 1713747-2013-99931

PATIENT
  Age: 68 Year
  Sex: Male
  Weight: 120.3 kg

DRUGS (3)
  1. SODIUM CHLORIDE [Suspect]
     Indication: RENAL FAILURE CHRONIC
     Dates: start: 201106, end: 201307
  2. LIBERTY CYLCER [Concomitant]
  3. LIBERTY CYCLER TUBING [Concomitant]

REACTIONS (1)
  - Chest pain [None]
